FAERS Safety Report 8354908-5 (Version None)
Quarter: 2012Q2

REPORT INFORMATION
  Report Type: 
  Country: None (occurrence: None)
  Receive Date: 20120511
  Receipt Date: 20120507
  Transmission Date: 20120825
  Serious: Yes (Hospitalization)
  Sender: FDA-Public Use
  Company Number: US-TEVA-337066USA

PATIENT
  Age: 21 Year
  Sex: Female

DRUGS (3)
  1. RIFAMPICIN [Concomitant]
     Route: 065
  2. TOBRAMYCIN [Suspect]
     Dosage: 7 MG/KG DAILY
     Route: 042
  3. TOBRAMYCIN [Suspect]
     Route: 055

REACTIONS (1)
  - PSEUDO-BARTTER SYNDROME [None]
